FAERS Safety Report 23769461 (Version 1)
Quarter: 2024Q2

REPORT INFORMATION
  Report Type: Spontaneous
  Country: US (occurrence: None)
  Receive Date: 20240420
  Receipt Date: 20240420
  Transmission Date: 20240716
  Serious: No
  Sender: FDA-Public Use
  Company Number: None

PATIENT
  Age: 61 Year
  Sex: Male
  Weight: 90 kg

DRUGS (1)
  1. PANITUMUMAB [Suspect]
     Active Substance: PANITUMUMAB

REACTIONS (8)
  - Erythema [None]
  - Swelling [None]
  - Haemorrhage [None]
  - Loss of personal independence in daily activities [None]
  - Pain in extremity [None]
  - Pain in extremity [None]
  - Gait disturbance [None]
  - Folliculitis [None]

NARRATIVE: CASE EVENT DATE: 20240321
